FAERS Safety Report 4492663-X (Version None)
Quarter: 2004Q4

REPORT INFORMATION
  Report Type: 
  Country: None (occurrence: None)
  Receive Date: 20041102
  Receipt Date: 20041102
  Transmission Date: 20050328
  Serious: Yes (Hospitalization)
  Sender: FDA-Public Use
  Company Number: None

PATIENT
  Age: 28 Year
  Sex: Female
  Weight: 48.0813 kg

DRUGS (8)
  1. REMODULIN [Suspect]
     Indication: PULMONARY HYPERTENSION
     Dosage: 80 NG/KG/KG/MIN
     Dates: start: 20040601
  2. COUMADIN [Concomitant]
  3. PLAQUINEL [Concomitant]
  4. SKELAXIN [Concomitant]
  5. LASIX [Concomitant]
  6. DIGOXIN [Concomitant]
  7. PREDNISONE [Concomitant]
  8. LEVAQUIN [Concomitant]

REACTIONS (4)
  - BLOOD CULTURE POSITIVE [None]
  - CATHETER RELATED INFECTION [None]
  - PSEUDOMONAS INFECTION [None]
  - PYREXIA [None]
